FAERS Safety Report 4490894-6 (Version None)
Quarter: 2004Q4

REPORT INFORMATION
  Report Type: 
  Country: None (occurrence: None)
  Receive Date: 20041102
  Receipt Date: 20041012
  Transmission Date: 20050328
  Serious: Yes (Other)
  Sender: FDA-Public Use
  Company Number: PHFR2004GB03840

PATIENT
  Age: 28 Year
  Sex: Male

DRUGS (3)
  1. CLOZARIL [Suspect]
     Indication: SCHIZOPHRENIA
     Dosage: 250MG/DAY
     Route: 048
     Dates: start: 20031007
  2. CLOZARIL [Suspect]
     Dosage: 225MG/DAY
     Route: 048
  3. HYOSCINE HBR HYT [Concomitant]
     Dosage: 300UG/DAY
     Route: 048

REACTIONS (3)
  - BREATHING-RELATED SLEEP DISORDER [None]
  - SLEEP APNOEA SYNDROME [None]
  - SNORING [None]
